FAERS Safety Report 8105122-X (Version None)
Quarter: 2012Q1

REPORT INFORMATION
  Report Type: 
  Country: None (occurrence: None)
  Receive Date: 20120130
  Receipt Date: 20120119
  Transmission Date: 20120608
  Serious: Yes (Other)
  Sender: FDA-Public Use
  Company Number: JP-SANOFI-AVENTIS-2012SA005998

PATIENT
  Age: 58 Year
  Sex: Male

DRUGS (2)
  1. TAXOTERE [Suspect]
     Indication: GASTRIC CANCER
     Dosage: VIAL, 50 MG/BODY
     Route: 041
     Dates: start: 20091019, end: 20091019
  2. GIMERACIL/OTERACIL POTASSIUM/TEGAFUR [Suspect]
     Indication: GASTRIC CANCER
     Route: 065

REACTIONS (3)
  - ABDOMINAL PAIN UPPER [None]
  - PANCREATITIS ACUTE [None]
  - AMYLASE INCREASED [None]
